FAERS Safety Report 8317715-5 (Version None)
Quarter: 2012Q2

REPORT INFORMATION
  Report Type: 
  Country: None (occurrence: None)
  Receive Date: 20120427
  Receipt Date: 20120425
  Transmission Date: 20120825
  Serious: Yes (Death)
  Sender: FDA-Public Use
  Company Number: US-B.I. PHARMACEUTICALS,INC./RIDGEFIELD-2012-BP-02800BP

PATIENT
  Sex: Female
  Weight: 45.35 kg

DRUGS (12)
  1. LEXAPRO [Concomitant]
     Route: 042
  2. PRADAXA [Suspect]
     Indication: ATRIAL FIBRILLATION
     Dosage: 300 MG
     Route: 048
     Dates: start: 20110120, end: 20120202
  3. ALTACE [Concomitant]
  4. BYSTOLIC [Concomitant]
  5. PRAVASTATIN [Concomitant]
  6. ZANAFLEX [Concomitant]
  7. HYDROCHLOROTHIAZIDE [Concomitant]
  8. SYMBICORT [Concomitant]
  9. LEVOTHYROXINE SODIUM [Concomitant]
  10. SPIRIVA [Concomitant]
  11. IBUPROFEN [Concomitant]
  12. ALBUTEROL [Concomitant]

REACTIONS (1)
  - BASAL GANGLIA HAEMORRHAGE [None]
